FAERS Safety Report 11917018 (Version 2)
Quarter: 2016Q3

REPORT INFORMATION
  Report Type: Spontaneous
  Country: BR (occurrence: BR)
  Receive Date: 20160114
  Receipt Date: 20160712
  Transmission Date: 20161109
  Serious: Yes (Hospitalization, Other)
  Sender: FDA-Public Use
  Company Number: BR-JNJFOC-20160104819

PATIENT
  Age: 31 Year
  Sex: Female

DRUGS (9)
  1. REMICADE [Suspect]
     Active Substance: INFLIXIMAB
     Indication: COLITIS
     Route: 042
     Dates: start: 201511
  2. PARACETAMOL [Suspect]
     Active Substance: ACETAMINOPHEN
     Indication: SPINAL PAIN
     Route: 065
     Dates: start: 2015
  3. REMICADE [Suspect]
     Active Substance: INFLIXIMAB
     Indication: CROHN^S DISEASE
     Route: 042
     Dates: start: 201511
  4. REMICADE [Suspect]
     Active Substance: INFLIXIMAB
     Indication: CROHN^S DISEASE
     Route: 042
     Dates: start: 2006
  5. REMICADE [Suspect]
     Active Substance: INFLIXIMAB
     Indication: COLITIS
     Route: 042
     Dates: start: 2006
  6. PARACETAMOL [Suspect]
     Active Substance: ACETAMINOPHEN
     Route: 065
  7. REMICADE [Suspect]
     Active Substance: INFLIXIMAB
     Indication: COLITIS
     Route: 042
     Dates: start: 2006
  8. OMEPRAZOLE. [Concomitant]
     Active Substance: OMEPRAZOLE
     Route: 065
  9. REMICADE [Suspect]
     Active Substance: INFLIXIMAB
     Indication: COLITIS
     Route: 042
     Dates: start: 201511

REACTIONS (11)
  - Haemorrhoids [Recovered/Resolved]
  - Memory impairment [Not Recovered/Not Resolved]
  - Pain [Recovered/Resolved]
  - Limb injury [Recovered/Resolved]
  - Gastritis [Not Recovered/Not Resolved]
  - Pyrexia [Recovered/Resolved]
  - Anal fistula [Unknown]
  - Rash erythematous [Unknown]
  - Spinal pain [Unknown]
  - Anal fissure [Recovered/Resolved]
  - Infection [Unknown]

NARRATIVE: CASE EVENT DATE: 2015
